FAERS Safety Report 4580084-0 (Version None)
Quarter: 2005Q1

REPORT INFORMATION
  Report Type: 
  Country: None (occurrence: None)
  Receive Date: 20050214
  Receipt Date: 20050201
  Transmission Date: 20050727
  Serious: Yes (Other)
  Sender: FDA-Public Use
  Company Number: JP-JNJFOC-20050202454

PATIENT
  Sex: Female

DRUGS (8)
  1. ITRIZOLE [Suspect]
     Route: 049
     Dates: start: 20040607
  2. ITRIZOLE [Suspect]
     Route: 049
     Dates: start: 20040607
  3. ITRIZOLE [Suspect]
     Indication: TINEA PEDIS
     Route: 049
     Dates: start: 20040607
  4. MECOBALAMIN [Concomitant]
  5. PRANOPROFEN [Concomitant]
  6. DIASTASE [Concomitant]
  7. PHENPROBAMATE [Concomitant]
  8. TERBINAFINE HCL [Concomitant]

REACTIONS (1)
  - WHITE BLOOD CELL COUNT DECREASED [None]
